FAERS Safety Report 5597827-X (Version None)
Quarter: 2007Q4

REPORT INFORMATION
  Report Type: 
  Country: None (occurrence: None)
  Receive Date: 20071221
  Receipt Date: 20070824
  Transmission Date: 20080405
  Serious: Yes (Other)
  Sender: FDA-Public Use
  Company Number: US-2007-031992

PATIENT
  Age: 77 Year
  Sex: Male

DRUGS (2)
  1. SOTALOL HCL [Suspect]
     Indication: ATRIAL FIBRILLATION
     Dates: start: 20070101
  2. RYTHMOL [Suspect]
     Indication: ATRIAL FIBRILLATION
     Dates: start: 20050101, end: 20070101

REACTIONS (1)
  - ATRIAL FIBRILLATION [None]
